FAERS Safety Report 21177731 (Version 1)
Quarter: 2022Q3

REPORT INFORMATION
  Report Type: Spontaneous
  Country: US (occurrence: US)
  Receive Date: 20220805
  Receipt Date: 20220805
  Transmission Date: 20221026
  Serious: No
  Sender: FDA-Public Use
  Company Number: US-Albireo AB-2022ALB000085

PATIENT
  Age: 15 Year
  Sex: Female
  Weight: 41.6 kg

DRUGS (1)
  1. BYLVAY [Suspect]
     Active Substance: ODEVIXIBAT
     Indication: Progressive familial intrahepatic cholestasis
     Route: 048
     Dates: start: 20211018

REACTIONS (1)
  - Accidental underdose [Unknown]

NARRATIVE: CASE EVENT DATE: 20220415
